FAERS Safety Report 9202535 (Version 1)
Quarter: 2013Q2

REPORT INFORMATION
  Report Type: Spontaneous
  Country: SE (occurrence: SE)
  Receive Date: 20130401
  Receipt Date: 20130401
  Transmission Date: 20140414
  Serious: Yes (Hospitalization)
  Sender: FDA-Public Use
  Company Number: SE-PFIZER INC-2013070495

PATIENT
  Age: 65 Year
  Sex: Female

DRUGS (2)
  1. SALAZOPYRIN [Suspect]
     Indication: RHEUMATOID ARTHRITIS
     Dosage: 1 G, 1X/DAY
     Route: 048
     Dates: start: 20121015, end: 20121108
  2. PREDNISOLON [Concomitant]

REACTIONS (4)
  - Altered state of consciousness [Recovered/Resolved]
  - Hypersensitivity [Recovered/Resolved]
  - Pyrexia [Recovered/Resolved]
  - Rash [Recovered/Resolved]
